FAERS Safety Report 23753358 (Version 1)
Quarter: 2024Q2

REPORT INFORMATION
  Report Type: Spontaneous
  Country: US (occurrence: US)
  Receive Date: 20240417
  Receipt Date: 20240417
  Transmission Date: 20240715
  Serious: Yes (Other)
  Sender: FDA-Public Use
  Company Number: US-ABBVIE-5713406

PATIENT
  Sex: Female

DRUGS (1)
  1. REFRESH OPTIVE MEGA-3 [Suspect]
     Active Substance: CARBOXYMETHYLCELLULOSE SODIUM\GLYCERIN\POLYSORBATE 80
     Indication: Dry eye
     Route: 047

REACTIONS (7)
  - Macular degeneration [Not Recovered/Not Resolved]
  - Dry eye [Unknown]
  - Eye irritation [Unknown]
  - Drug ineffective [Not Recovered/Not Resolved]
  - Vision blurred [Unknown]
  - Lacrimation increased [Unknown]
  - Intentional product misuse [Unknown]
